FAERS Safety Report 5177736-0 (Version None)
Quarter: 2006Q4

REPORT INFORMATION
  Report Type: 
  Country: None (occurrence: None)
  Receive Date: 20061218
  Receipt Date: 20061016
  Transmission Date: 20070319
  Serious: No
  Sender: FDA-Public Use
  Company Number: US-AMGEN-US196944

PATIENT
  Age: 54 Year
  Sex: Male

DRUGS (4)
  1. SENSIPAR [Suspect]
     Indication: HYPERPARATHYROIDISM SECONDARY
     Route: 065
     Dates: start: 20060901
  2. VITAMINS [Concomitant]
     Route: 065
  3. SLEEPING MEDICATION NOS [Concomitant]
     Route: 065
  4. UNSPECIFIED ANALGESIC [Concomitant]
     Route: 065

REACTIONS (1)
  - DIARRHOEA [None]
